FAERS Safety Report 9326495 (Version 1)
Quarter: 2013Q2

REPORT INFORMATION
  Report Type: Spontaneous
  Country: US (occurrence: US)
  Receive Date: 20130604
  Receipt Date: 20130604
  Transmission Date: 20140414
  Serious: No
  Sender: FDA-Public Use
  Company Number: US-AMGEN-USASP2013031831

PATIENT
  Age: 54 Year
  Sex: Male

DRUGS (1)
  1. ENBREL [Suspect]
     Indication: RHEUMATOID ARTHRITIS
     Dosage: 50 MG, QWK
     Dates: start: 20120606

REACTIONS (5)
  - Pruritus [Not Recovered/Not Resolved]
  - Sunburn [Not Recovered/Not Resolved]
  - Erythema [Not Recovered/Not Resolved]
  - Upper extremity mass [Not Recovered/Not Resolved]
  - Local swelling [Not Recovered/Not Resolved]
